FAERS Safety Report 8019467 (Version 4)
Quarter: 2012Q4

REPORT INFORMATION
  Report Type: Report from Study
  Country: FR (occurrence: FR)
  Receive Date: 20110704
  Receipt Date: 20121031
  Transmission Date: 20130627
  Serious: Yes (Hospitalization, Other)
  Sender: FDA-Public Use
  Company Number: FR-BIOGENIDEC-2011BI023757

PATIENT
  Age: 40 Year
  Sex: Male
  Weight: 75 kg

DRUGS (9)
  1. TYSABRI [Suspect]
     Indication: MULTIPLE SCLEROSIS
     Route: 042
     Dates: start: 20070809, end: 20080729
  2. TYSABRI [Suspect]
     Indication: MULTIPLE SCLEROSIS
     Route: 042
     Dates: start: 20081110
  3. AMYTRIPTYLINE [Concomitant]
  4. TETRAZEPAM [Concomitant]
     Indication: MUSCLE SPASTICITY
     Dates: start: 20041030
  5. CLONAZEPAM [Concomitant]
     Indication: MUSCLE SPASTICITY
     Dates: start: 20060130
  6. CLONAZEPAM [Concomitant]
     Indication: PAIN
     Dates: start: 20060130
  7. ANTIHYPERTENSIVES [Concomitant]
  8. MUSCLE RELAXANTS [Concomitant]
  9. BACLOFEN [Concomitant]
     Indication: MUSCLE SPASTICITY
     Dates: start: 20080330, end: 20080929

REACTIONS (1)
  - Cognitive disorder [Recovered/Resolved]
